FAERS Safety Report 9639163 (Version 1)
Quarter: 2013Q4

REPORT INFORMATION
  Report Type: Report from Study
  Country: BR (occurrence: BR)
  Receive Date: 20131022
  Receipt Date: 20131022
  Transmission Date: 20140711
  Serious: Yes (Other)
  Sender: FDA-Public Use
  Company Number: BR-ROCHE-1291468

PATIENT
  Age: 35 Year
  Sex: Female
  Weight: 63 kg

DRUGS (6)
  1. PEG-INTERFERON ALFA 2A [Suspect]
     Indication: HEPATITIS C
     Route: 065
     Dates: start: 20080520
  2. PEG-INTERFERON ALFA 2A [Suspect]
     Route: 065
     Dates: start: 20100812
  3. PEG-INTERFERON ALFA 2A [Suspect]
     Route: 065
     Dates: start: 20111125
  4. RIBAVIRIN [Suspect]
     Indication: HEPATITIS C
     Route: 065
     Dates: start: 20080520
  5. RIBAVIRIN [Suspect]
     Route: 065
     Dates: start: 20100812
  6. RIBAVIRIN [Suspect]
     Route: 065
     Dates: start: 20111125

REACTIONS (3)
  - Viral load increased [Recovered/Resolved]
  - Treatment noncompliance [Unknown]
  - Hypertension [Unknown]
